FAERS Safety Report 5649565-2 (Version None)
Quarter: 2008Q1

REPORT INFORMATION
  Report Type: 
  Country: None (occurrence: None)
  Receive Date: 20080131
  Receipt Date: 20071113
  Transmission Date: 20080703
  Serious: No
  Sender: FDA-Public Use
  Company Number: US200711003244

PATIENT
  Age: 72 Year
  Sex: Male
  Weight: 92.5 kg

DRUGS (1)
  1. BYETTA [Suspect]
     Indication: TYPE 2 DIABETES MELLITUS
     Dosage: 10 UG, 2/D, SUBCUTANEOUS
     Route: 058
     Dates: start: 20060301

REACTIONS (3)
  - NAUSEA [None]
  - NEPHROLITHIASIS [None]
  - WEIGHT DECREASED [None]
